FAERS Safety Report 7969719-X (Version None)
Quarter: 2011Q4

REPORT INFORMATION
  Report Type: 
  Country: None (occurrence: None)
  Receive Date: 20111212
  Receipt Date: 20111129
  Transmission Date: 20120403
  Serious: Yes (Other)
  Sender: FDA-Public Use
  Company Number: CA-JNJFOC-20111201891

PATIENT
  Sex: Female
  Weight: 76 kg

DRUGS (6)
  1. MULTI-VITAMINS [Concomitant]
     Route: 065
  2. REMICADE [Suspect]
     Indication: CROHN'S DISEASE
     Route: 042
  3. PENTASA [Concomitant]
     Dosage: 3
     Route: 065
  4. VITAMIN B COMPLEX CAP [Concomitant]
     Route: 065
  5. ASCORBIC ACID [Concomitant]
     Route: 065
  6. VITAMIN D [Concomitant]
     Route: 065

REACTIONS (5)
  - VOMITING [None]
  - BACK PAIN [None]
  - ARTHRITIS [None]
  - HEADACHE [None]
  - DIARRHOEA [None]
